FAERS Safety Report 7823068-9 (Version None)
Quarter: 2011Q4

REPORT INFORMATION
  Report Type: 
  Country: None (occurrence: None)
  Receive Date: 20111018
  Receipt Date: 20101215
  Transmission Date: 20120403
  Serious: No
  Sender: FDA-Public Use
  Company Number: US-ASTRAZENECA-2010SE54543

PATIENT
  Age: 63 Year
  Sex: Male

DRUGS (1)
  1. SYMBICORT [Suspect]
     Indication: ASTHMA
     Dosage: 80/4.5 MCG PRN
     Route: 055
     Dates: start: 20100804

REACTIONS (3)
  - DRUG DOSE OMISSION [None]
  - COUGH [None]
  - WRONG TECHNIQUE IN DRUG USAGE PROCESS [None]
